FAERS Safety Report 9698170 (Version 1)
Quarter: 2013Q4

REPORT INFORMATION
  Report Type: Spontaneous
  Country: FR (occurrence: None)
  Receive Date: 20131118
  Receipt Date: 20131118
  Transmission Date: 20140711
  Serious: Yes (Hospitalization)
  Sender: FDA-Public Use
  Company Number: VAL_02822_2013

PATIENT
  Age: 55 Year
  Sex: Male

DRUGS (15)
  1. LOPRESSOR [Suspect]
     Indication: PRODUCT USED FOR UNKNOWN INDICATION
     Route: 048
     Dates: start: 20130610
  2. MYFORTIC [Suspect]
     Indication: PROPHYLAXIS AGAINST TRANSPLANT REJECTION
     Route: 048
     Dates: start: 20130723, end: 20131003
  3. NEORAL [Suspect]
     Indication: PRODUCT USED FOR UNKNOWN INDICATION
     Route: 048
     Dates: start: 20130723
  4. TRIATEC [Suspect]
     Indication: PRODUCT USED FOR UNKNOWN INDICATION
     Route: 048
     Dates: start: 20130411, end: 20131010
  5. LASILIX [Suspect]
     Indication: PRODUCT USED FOR UNKNOWN INDICATION
     Route: 048
     Dates: start: 20130527
  6. PENTACARINAT [Suspect]
     Dosage: ( 1 DF 1X/WEEK, AEROSOL; REGIMEN #1 ORAL)
     Route: 048
     Dates: start: 20130605
  7. EUPANTOL [Suspect]
     Indication: PRODUCT USED FOR UNKNOWN INDICATION
     Route: 048
     Dates: start: 20130610
  8. SERETIDE [Suspect]
     Indication: PRODUCT USED FOR UNKNOWN INDICATION
     Dosage: 500/50 UG; 2 PUFFS QD [REGIMEN #1] ORAL
     Route: 048
     Dates: start: 20130610
  9. CORDARONE X [Suspect]
     Indication: PRODUCT USED FOR UNKNOWN INDICATION
     Dosage: 200 MG  5X/WEEK [REGIMEN #1] ORAL
     Route: 048
     Dates: start: 20130723
  10. OFLOCET [Suspect]
     Indication: BACTERIAL INFECTION
     Route: 048
     Dates: start: 20130926, end: 20131003
  11. CALCIPARINE [Suspect]
     Indication: PRODUCT USED FOR UNKNOWN INDICATION
     Route: 058
     Dates: start: 20130926
  12. PREVISCAN [Suspect]
     Indication: PRODUCT USED FOR UNKNOWN INDICATION
     Route: 048
     Dates: start: 20131001
  13. SPECIAFOLDINE [Concomitant]
  14. KAYEXALATE [Concomitant]
  15. SOLUPRED /00016201/ [Concomitant]

REACTIONS (10)
  - Bronchitis chronic [None]
  - Umbilical hernia [None]
  - Bacterial infection [None]
  - Blood blister [None]
  - Cytomegalovirus infection [None]
  - Thrombocytopenic purpura [None]
  - Epstein-Barr virus infection [None]
  - Erythema infectiosum [None]
  - Subcutaneous haematoma [None]
  - Traumatic haematoma [None]
